FAERS Safety Report 5974815-2 (Version None)
Quarter: 2008Q4

REPORT INFORMATION
  Report Type: 
  Country: None (occurrence: None)
  Receive Date: 20081201
  Receipt Date: 20081126
  Transmission Date: 20090506
  Serious: Yes (Other)
  Sender: FDA-Public Use
  Company Number: BR-PFIZER INC-2008100605

PATIENT
  Age: 83 Year
  Sex: Male

DRUGS (2)
  1. FELDENE [Suspect]
     Dosage: TEXT:UNKNOWN UNKNOW UNKNOWN TDD:UNKNOWN
     Route: 065
  2. KATADOLON [Suspect]
     Dosage: TEXT:UNKNOWN UNKNOW UNKNOWN TDD:UNKNOWN
     Route: 065

REACTIONS (1)
  - DEAFNESS [None]
